FAERS Safety Report 5464560-4 (Version None)
Quarter: 2007Q3

REPORT INFORMATION
  Report Type: 
  Country: None (occurrence: None)
  Receive Date: 20070921
  Receipt Date: 20070913
  Transmission Date: 20080115
  Serious: Yes (Hospitalization, Disabling)
  Sender: FDA-Public Use
  Company Number: FR-AMGEN-US243524

PATIENT
  Sex: Female
  Weight: 61 kg

DRUGS (5)
  1. ENBREL [Suspect]
     Indication: RHEUMATOID ARTHRITIS
     Route: 058
     Dates: start: 20070701, end: 20070903
  2. LEXOMIL [Concomitant]
     Dosage: 0.5 MG TOTAL DAILY
     Route: 048
     Dates: start: 20061101
  3. DAFALGAN [Concomitant]
     Dosage: 3 G TOTAL DAILY
     Route: 048
     Dates: start: 20020101
  4. EUPANTOL [Concomitant]
     Dosage: 20 MG TOTAL DAILY
     Route: 048
     Dates: start: 20020101
  5. CORTANCYL [Concomitant]
     Dosage: 7.5 MG TOTAL DAILY
     Route: 048
     Dates: start: 19970101

REACTIONS (5)
  - ARTHRALGIA [None]
  - ASTHENIA [None]
  - BONE PAIN [None]
  - PYREXIA [None]
  - SLEEP DISORDER DUE TO GENERAL MEDICAL CONDITION, INSOMNIA TYPE [None]
